FAERS Safety Report 7974632-8 (Version None)
Quarter: 2011Q4

REPORT INFORMATION
  Report Type: 
  Country: None (occurrence: None)
  Receive Date: 20111213
  Receipt Date: 20111130
  Transmission Date: 20120403
  Serious: Yes (Death, Hospitalization)
  Sender: FDA-Public Use
  Company Number: DE-ACTELION-A-CH2011-57759

PATIENT
  Age: 48 Year
  Sex: Female

DRUGS (3)
  1. TRACLEER [Suspect]
     Indication: PULMONARY HYPERTENSION
     Dosage: 125 MG, BID
     Route: 048
  2. PREDNISOLONE [Concomitant]
  3. AZATHIOPRINE [Concomitant]

REACTIONS (15)
  - INFLUENZA A VIRUS TEST POSITIVE [None]
  - SUPERINFECTION [None]
  - PULMONARY OEDEMA [None]
  - MULTI-ORGAN FAILURE [None]
  - COUGH [None]
  - C-REACTIVE PROTEIN INCREASED [None]
  - RESPIRATORY FAILURE [None]
  - PULMONARY HAEMORRHAGE [None]
  - MECHANICAL VENTILATION [None]
  - NASOPHARYNGITIS [None]
  - PYREXIA [None]
  - LUNG TRANSPLANT [None]
  - ACUTE RESPIRATORY DISTRESS SYNDROME [None]
  - PNEUMONIA VIRAL [None]
  - ENDOTRACHEAL INTUBATION [None]
